FAERS Safety Report 6739452-0 (Version None)
Quarter: 2010Q2

REPORT INFORMATION
  Report Type: 
  Country: None (occurrence: None)
  Receive Date: 20100525
  Receipt Date: 20100519
  Transmission Date: 20101027
  Serious: Yes (Death)
  Sender: FDA-Public Use
  Company Number: JP-BAYER-200912803BYL

PATIENT
  Age: 59 Year
  Sex: Male
  Weight: 83 kg

DRUGS (23)
  1. NEXAVAR [Suspect]
     Indication: HEPATIC NEOPLASM MALIGNANT
     Dosage: UNIT DOSE: 200 MG
     Route: 048
     Dates: start: 20090530, end: 20090605
  2. NEXAVAR [Suspect]
     Dosage: UNIT DOSE: 200 MG
     Route: 048
     Dates: start: 20090605, end: 20090707
  3. ZADITEN [Concomitant]
     Dosage: SINCE BEFORE NEXAVAR ADMINISTRATION
     Route: 048
     Dates: end: 20090707
  4. EUGLUCON [Concomitant]
     Dosage: SINCE BEFORE NEXAVAR ADMINISTRATION
     Route: 048
     Dates: end: 20090707
  5. THEOLONG [Concomitant]
     Dosage: SINCE BEFORE NEXAVAR ADMINISTRATION
     Route: 048
     Dates: end: 20090707
  6. SPIROPENT [Concomitant]
     Dosage: SINCE BEFORE NEXAVAR ADMINISTRATION
     Route: 048
     Dates: end: 20090707
  7. ZYLORIC [Concomitant]
     Dosage: SINCE BEFORE NEXAVAR ADMINISTRATION
     Route: 048
     Dates: end: 20090707
  8. MELBIN [Concomitant]
     Dosage: SINCE BEFORE NEXAVAR ADMINISTRATION
     Route: 048
     Dates: end: 20090707
  9. ACTOS [Concomitant]
     Dosage: SINCE BEFORE NEXAVAR ADMINISTRATION
     Route: 048
     Dates: end: 20090707
  10. HARNAL [Concomitant]
     Dosage: SINCE BEFORE NEXAVAR ADMINISTRATION
     Route: 048
     Dates: end: 20090723
  11. OMEPRAL [Concomitant]
     Dosage: SINCE BEFORE NEXAVAR ADMINISTRATION
     Route: 048
     Dates: end: 20090723
  12. CYANOCOBALAMIN [Concomitant]
     Dosage: SINCE BEFORE NEXAVAR ADMINISTRATION
     Route: 048
     Dates: end: 20090707
  13. MIYA BM [Concomitant]
     Dosage: SINCE BEFORE NEXAVAR ADMINISTRATION
     Route: 048
     Dates: end: 20090707
  14. LASIX [Concomitant]
     Dosage: SINCE BEFORE NEXAVAR ADMINISTRATION
     Route: 048
     Dates: end: 20090707
  15. DERMOVATE SCALP [Concomitant]
     Route: 062
     Dates: start: 20090531
  16. HIRUDOID [Concomitant]
     Route: 061
     Dates: start: 20090602
  17. OXYCONTIN [Concomitant]
     Route: 048
     Dates: start: 20090619, end: 20090723
  18. ALDACTONE [Concomitant]
     Route: 048
     Dates: start: 20090623, end: 20090722
  19. MONILAC [Concomitant]
     Route: 048
     Dates: start: 20090623, end: 20090722
  20. MAGLAX [Concomitant]
     Route: 048
     Dates: start: 20090623, end: 20090707
  21. RINDERON [Concomitant]
     Route: 048
     Dates: start: 20090626, end: 20090707
  22. ALESION [Concomitant]
     Route: 048
     Dates: start: 20090703, end: 20090722
  23. MORPHINE HYDROCHLORIDE [Concomitant]
     Route: 042
     Dates: start: 20090723, end: 20090801

REACTIONS (3)
  - HEPATIC FUNCTION ABNORMAL [None]
  - HEPATIC NEOPLASM MALIGNANT [None]
  - RASH [None]
